FAERS Safety Report 21120127 (Version 2)
Quarter: 2022Q3

REPORT INFORMATION
  Report Type: Spontaneous
  Country: GB (occurrence: GB)
  Receive Date: 20220722
  Receipt Date: 20220802
  Transmission Date: 20221027
  Serious: Yes (Life-Threatening, Hospitalization, Disabling, Other)
  Sender: FDA-Public Use
  Company Number: None

PATIENT
  Age: 77 Year
  Sex: Female
  Weight: 55 kg

DRUGS (6)
  1. METHOTREXATE SODIUM [Suspect]
     Active Substance: METHOTREXATE SODIUM
     Indication: Pyoderma gangrenosum
     Dosage: 10 MG, WEEKLY
     Dates: start: 20200210, end: 20210711
  2. METHOTREXATE SODIUM [Suspect]
     Active Substance: METHOTREXATE SODIUM
     Dosage: 20 MG, WEEKLY
     Dates: start: 20210711, end: 20210826
  3. CODEINE [Concomitant]
     Active Substance: CODEINE
     Indication: Diarrhoea
  4. FUROSEMIDE [Concomitant]
     Active Substance: FUROSEMIDE
     Indication: Joint swelling
  5. PREDNISOLONE [Concomitant]
     Active Substance: PREDNISOLONE
     Indication: Skin ulcer
     Dosage: UNK
  6. RIVAROXABAN [Concomitant]
     Active Substance: RIVAROXABAN
     Indication: Pulmonary embolism
     Dosage: UNK
     Dates: start: 20200302

REACTIONS (3)
  - Pneumonitis [Unknown]
  - Pulmonary fibrosis [Recovered/Resolved with Sequelae]
  - Off label use [Unknown]

NARRATIVE: CASE EVENT DATE: 20210823
